FAERS Safety Report 24085562 (Version 1)
Quarter: 2024Q3

REPORT INFORMATION
  Report Type: Spontaneous
  Country: AU (occurrence: AU)
  Receive Date: 20240712
  Receipt Date: 20240712
  Transmission Date: 20241016
  Serious: Yes (Other)
  Sender: ELI LILLY AND CO
  Company Number: AU-ELI_LILLY_AND_COMPANY-AU202407002252

PATIENT
  Sex: Male

DRUGS (16)
  1. FLUOXETINE HYDROCHLORIDE [Suspect]
     Active Substance: FLUOXETINE HYDROCHLORIDE
     Indication: Product used for unknown indication
     Dosage: UNK, UNKNOWN
     Route: 064
  2. FLUOXETINE HYDROCHLORIDE [Suspect]
     Active Substance: FLUOXETINE HYDROCHLORIDE
     Indication: Product used for unknown indication
     Dosage: UNK, UNKNOWN
     Route: 064
  3. FLUOXETINE HYDROCHLORIDE [Suspect]
     Active Substance: FLUOXETINE HYDROCHLORIDE
     Dosage: UNK, UNKNOWN
     Route: 063
  4. FLUOXETINE HYDROCHLORIDE [Suspect]
     Active Substance: FLUOXETINE HYDROCHLORIDE
     Dosage: UNK, UNKNOWN
     Route: 063
  5. MORPHINE SULFATE [Suspect]
     Active Substance: MORPHINE SULFATE
     Indication: Product used for unknown indication
     Dosage: UNK, UNKNOWN
     Route: 064
  6. MORPHINE SULFATE [Suspect]
     Active Substance: MORPHINE SULFATE
     Indication: Product used for unknown indication
     Dosage: UNK, UNKNOWN
     Route: 064
  7. MORPHINE SULFATE [Suspect]
     Active Substance: MORPHINE SULFATE
     Dosage: UNK, UNKNOWN
     Route: 063
  8. MORPHINE SULFATE [Suspect]
     Active Substance: MORPHINE SULFATE
     Dosage: UNK, UNKNOWN
     Route: 063
  9. OXYCODONE [Suspect]
     Active Substance: OXYCODONE
     Indication: Product used for unknown indication
     Dosage: UNK, UNKNOWN
     Route: 064
  10. OXYCODONE [Suspect]
     Active Substance: OXYCODONE
     Indication: Product used for unknown indication
     Dosage: UNK, UNKNOWN
     Route: 064
  11. OXYCODONE [Suspect]
     Active Substance: OXYCODONE
     Dosage: UNK, UNKNOWN
     Route: 063
  12. OXYCODONE [Suspect]
     Active Substance: OXYCODONE
     Dosage: UNK, UNKNOWN
     Route: 063
  13. QUETIAPINE [Suspect]
     Active Substance: QUETIAPINE
     Indication: Product used for unknown indication
     Dosage: UNK, UNKNOWN
     Route: 064
  14. QUETIAPINE [Suspect]
     Active Substance: QUETIAPINE
     Indication: Product used for unknown indication
     Dosage: UNK, UNKNOWN
     Route: 064
  15. QUETIAPINE [Suspect]
     Active Substance: QUETIAPINE
     Dosage: UNK, UNKNOWN
     Route: 063
  16. QUETIAPINE [Suspect]
     Active Substance: QUETIAPINE
     Dosage: UNK, UNKNOWN
     Route: 063

REACTIONS (4)
  - Drug dependence [Unknown]
  - Foetal exposure during pregnancy [Unknown]
  - Exposure via breast milk [Unknown]
  - Weight decreased [Unknown]
